FAERS Safety Report 8787507 (Version 1)
Quarter: 2012Q4

REPORT INFORMATION
  Report Type: Report from Study
  Country: US (occurrence: US)
  Receive Date: 20120914
  Receipt Date: 20120914
  Transmission Date: 20130627
  Serious: No
  Sender: FDA-Public Use
  Company Number: US-VERTEX PHARMACEUTICAL INC.-AE-2012-009918

PATIENT

DRUGS (10)
  1. INCIVEK [Suspect]
     Indication: HEPATITIS C
     Route: 048
  2. PEGASYS [Concomitant]
     Indication: HEPATITIS C
  3. RIBAVIRIN [Concomitant]
     Indication: HEPATITIS C
  4. PREMARIN [Concomitant]
  5. HYDROCHLOROT [Concomitant]
  6. VITAMIN D-3 [Concomitant]
  7. FLINTSTONES CHW COMPLETE [Concomitant]
  8. VITAMIN C [Concomitant]
  9. IRON TAB [Concomitant]
  10. LEVOTHYROXIN [Concomitant]

REACTIONS (7)
  - Depression [Unknown]
  - Headache [Unknown]
  - Insomnia [Unknown]
  - Blister [Unknown]
  - Pruritus [Unknown]
  - Haemorrhoids [Unknown]
  - Nausea [Unknown]
